FAERS Safety Report 25256763 (Version 1)
Quarter: 2025Q2

REPORT INFORMATION
  Report Type: Spontaneous
  Country: US (occurrence: US)
  Receive Date: 20250430
  Receipt Date: 20250430
  Transmission Date: 20250716
  Serious: No
  Sender: ELI LILLY AND COMPANY
  Company Number: US-ELI_LILLY_AND_COMPANY-US202504021409

PATIENT
  Age: 67 Year
  Sex: Female

DRUGS (9)
  1. ZEPBOUND [Interacting]
     Active Substance: TIRZEPATIDE
     Indication: Sleep apnoea syndrome
     Route: 058
  2. ZEPBOUND [Interacting]
     Active Substance: TIRZEPATIDE
     Indication: Sleep apnoea syndrome
     Route: 058
  3. ZEPBOUND [Interacting]
     Active Substance: TIRZEPATIDE
     Indication: Sleep apnoea syndrome
     Route: 058
  4. ZEPBOUND [Interacting]
     Active Substance: TIRZEPATIDE
     Indication: Sleep apnoea syndrome
     Route: 058
  5. ZEPBOUND [Interacting]
     Active Substance: TIRZEPATIDE
     Indication: Sleep apnoea syndrome
     Route: 058
     Dates: start: 20250422
  6. ZEPBOUND [Interacting]
     Active Substance: TIRZEPATIDE
     Indication: Sleep apnoea syndrome
     Route: 058
     Dates: start: 20250422
  7. ZEPBOUND [Interacting]
     Active Substance: TIRZEPATIDE
     Indication: Sleep apnoea syndrome
     Route: 058
     Dates: start: 20250422
  8. ZEPBOUND [Interacting]
     Active Substance: TIRZEPATIDE
     Indication: Sleep apnoea syndrome
     Route: 058
     Dates: start: 20250422
  9. OLANZAPINE [Interacting]
     Active Substance: OLANZAPINE
     Indication: Mental disorder
     Route: 065

REACTIONS (2)
  - Drug interaction [Unknown]
  - Injection site reaction [Recovered/Resolved]

NARRATIVE: CASE EVENT DATE: 20250422
